FAERS Safety Report 10406699 (Version 2)
Quarter: 2014Q4

REPORT INFORMATION
  Report Type: Spontaneous
  Country: US (occurrence: US)
  Receive Date: 20140825
  Receipt Date: 20141010
  Transmission Date: 20150528
  Serious: Yes (Other)
  Sender: FDA-Public Use
  Company Number: US-JNJFOC-20140820423

PATIENT
  Age: 34 Year
  Sex: Male

DRUGS (2)
  1. REMICADE [Suspect]
     Active Substance: INFLIXIMAB
     Indication: CROHN^S DISEASE
     Route: 042
  2. CIPRO [Concomitant]
     Active Substance: CIPROFLOXACIN HYDROCHLORIDE
     Indication: CROHN^S DISEASE
     Dosage: 500 UNITS UNSPECIFIED
     Route: 065
     Dates: start: 2012, end: 2014

REACTIONS (2)
  - Liver function test abnormal [Unknown]
  - Histoplasmosis [Recovering/Resolving]

NARRATIVE: CASE EVENT DATE: 201407
